FAERS Safety Report 15514913 (Version 2)
Quarter: 2018Q4

REPORT INFORMATION
  Report Type: Spontaneous
  Country: US (occurrence: US)
  Receive Date: 20181017
  Receipt Date: 20181026
  Transmission Date: 20190205
  Serious: No
  Sender: FDA-Public Use
  Company Number: US-B.I. PHARMACEUTICALS,INC./RIDGEFIELD-2018-BI-050178

PATIENT
  Sex: Female

DRUGS (1)
  1. SPIRIVA RESPIMAT [Suspect]
     Active Substance: TIOTROPIUM BROMIDE
     Indication: DYSPNOEA
     Dosage: FORM STRENGTH: 1.25 MCG; FORMULATION: INHALATION SPRAY? ACTION(S) TAKEN WITH PRODUCT: NOT REPORTED
     Route: 055
     Dates: start: 20181010

REACTIONS (2)
  - Extra dose administered [Unknown]
  - Product quality issue [Unknown]

NARRATIVE: CASE EVENT DATE: 20181010
